FAERS Safety Report 9558585 (Version 1)
Quarter: 2013Q3

REPORT INFORMATION
  Report Type: Report from Study
  Country: IT (occurrence: MW)
  Receive Date: 20130926
  Receipt Date: 20130926
  Transmission Date: 20140515
  Serious: Yes (Death)
  Sender: FDA-Public Use
  Company Number: MW-B.I. PHARMACEUTICALS,INC./RIDGEFIELD-2013-BI-29886GD

PATIENT
  Sex: 0

DRUGS (4)
  1. VIRAMUNE [Suspect]
     Indication: PROPHYLAXIS AGAINST HIV INFECTION
     Route: 064
  2. VIRAMUNE [Suspect]
     Dosage: 2 MG/KG OF BODY WEIGHT WITHIN 72 H OF BIRTH
     Route: 048
  3. ANTI-HIV AGENT [Suspect]
     Indication: PROPHYLAXIS AGAINST HIV INFECTION
     Route: 064
  4. ANTI-HIV AGENT [Suspect]
     Route: 063

REACTIONS (1)
  - Measles [Fatal]
